FAERS Safety Report 5591043-3 (Version None)
Quarter: 2008Q1

REPORT INFORMATION
  Report Type: 
  Country: None (occurrence: None)
  Receive Date: 20080115
  Receipt Date: 20080107
  Transmission Date: 20080703
  Serious: Yes (Other)
  Sender: FDA-Public Use
  Company Number: PHNU2008DE00499

PATIENT
  Sex: Male

DRUGS (4)
  1. VOLTAREN [Suspect]
     Route: 061
  2. LOCOL [Concomitant]
  3. CRANOC [Concomitant]
  4. CORTISONE ACETATE TAB [Concomitant]

REACTIONS (1)
  - COSTOCHONDRITIS [None]
